FAERS Safety Report 7118606-8 (Version None)
Quarter: 2010Q4

REPORT INFORMATION
  Report Type: 
  Country: None (occurrence: None)
  Receive Date: 20101123
  Receipt Date: 20101110
  Transmission Date: 20110411
  Serious: Yes (Other)
  Sender: FDA-Public Use
  Company Number: JP-ELI_LILLY_AND_COMPANY-JP201011002530

PATIENT
  Age: 60 Year
  Sex: Female

DRUGS (1)
  1. ZYPREXA [Suspect]
     Route: 048

REACTIONS (1)
  - PANCYTOPENIA [None]
